FAERS Safety Report 8334857-9 (Version None)
Quarter: 2012Q2

REPORT INFORMATION
  Report Type: 
  Country: None (occurrence: None)
  Receive Date: 20120503
  Receipt Date: 20120420
  Transmission Date: 20120825
  Serious: Yes (Hospitalization)
  Sender: FDA-Public Use
  Company Number: NL-MEDIMMUNE-MEDI-0015057

PATIENT
  Sex: Male
  Weight: 4.765 kg

DRUGS (2)
  1. SYNAGIS [Suspect]
     Route: 030
     Dates: start: 20120221, end: 20120221
  2. SYNAGIS [Suspect]
     Indication: PREMATURE BABY
     Route: 030
     Dates: start: 20111104, end: 20120126

REACTIONS (4)
  - BRONCHITIS [None]
  - VIRAL INFECTION [None]
  - DYSPNOEA [None]
  - WHEEZING [None]
